FAERS Safety Report 7088749-6 (Version None)
Quarter: 2010Q4

REPORT INFORMATION
  Report Type: 
  Country: None (occurrence: None)
  Receive Date: 20101108
  Receipt Date: 20101030
  Transmission Date: 20110411
  Serious: Yes (Other)
  Sender: FDA-Public Use
  Company Number: ES-BAYER-201044339GPV

PATIENT
  Age: 37 Year
  Sex: Female

DRUGS (1)
  1. SORAFENIB [Suspect]
     Indication: HEPATIC NEOPLASM MALIGNANT
     Dosage: TOTAL DAILY DOSE: 800 MG

REACTIONS (10)
  - DIARRHOEA [None]
  - EYELID OEDEMA [None]
  - GASTROINTESTINAL DISORDER [None]
  - LICHENOID KERATOSIS [None]
  - NAUSEA [None]
  - PARAKERATOSIS [None]
  - PIGMENTATION DISORDER [None]
  - SKIN NECROSIS [None]
  - TOXIC SKIN ERUPTION [None]
  - VOMITING [None]
